FAERS Safety Report 25416027 (Version 1)
Quarter: 2025Q2

REPORT INFORMATION
  Report Type: Spontaneous
  Country: BR (occurrence: BR)
  Receive Date: 20250610
  Receipt Date: 20250610
  Transmission Date: 20250716
  Serious: Yes (Life-Threatening, Hospitalization)
  Sender: BIOGEN
  Company Number: BR-BIOGEN-2021BI01018571

PATIENT
  Age: 53 Year
  Sex: Male
  Weight: 77 kg

DRUGS (8)
  1. AVONEX [Suspect]
     Active Substance: INTERFERON BETA-1A
     Indication: Multiple sclerosis
     Route: 050
     Dates: start: 2015, end: 2018
  2. AVONEX [Suspect]
     Active Substance: INTERFERON BETA-1A
  3. AVONEX [Suspect]
     Active Substance: INTERFERON BETA-1A
  4. AVONEX [Suspect]
     Active Substance: INTERFERON BETA-1A
  5. AMITRIPTYLINE [Concomitant]
     Active Substance: AMITRIPTYLINE
     Indication: Anxiety
     Route: 050
     Dates: start: 2000, end: 202502
  6. CALMASYN [Concomitant]
     Indication: Insomnia
     Route: 050
     Dates: start: 202503
  7. MELATONIN [Concomitant]
     Active Substance: MELATONIN
     Indication: Insomnia
     Route: 050
     Dates: start: 202502
  8. TRYPTOPHAN [Concomitant]
     Active Substance: TRYPTOPHAN
     Indication: Insomnia
     Route: 050
     Dates: start: 202503

REACTIONS (7)
  - Suicidal ideation [Recovered/Resolved]
  - Multiple sclerosis relapse [Recovered/Resolved]
  - Homicidal ideation [Unknown]
  - Fear [Unknown]
  - Depressed mood [Recovered/Resolved]
  - Pyrexia [Recovered/Resolved]
  - Anxiety [Unknown]

NARRATIVE: CASE EVENT DATE: 20190301
